FAERS Safety Report 24850241 (Version 2)
Quarter: 2025Q1

REPORT INFORMATION
  Report Type: Spontaneous
  Country: IT (occurrence: IT)
  Receive Date: 20250116
  Receipt Date: 20250130
  Transmission Date: 20250409
  Serious: Yes (Other)
  Sender: BRACCO
  Company Number: IT-BRACCO-2025IT00124

PATIENT
  Age: 69 Year
  Sex: Female

DRUGS (3)
  1. SULFUR HEXAFLUORIDE [Suspect]
     Active Substance: SULFUR HEXAFLUORIDE
     Indication: Ultrasound scan
     Route: 042
     Dates: start: 20250107, end: 20250107
  2. SULFUR HEXAFLUORIDE [Suspect]
     Active Substance: SULFUR HEXAFLUORIDE
     Indication: Ultrasound scan
     Route: 042
     Dates: start: 20250107, end: 20250107
  3. SULFUR HEXAFLUORIDE [Suspect]
     Active Substance: SULFUR HEXAFLUORIDE
     Indication: Ultrasound scan
     Route: 042
     Dates: start: 20250107, end: 20250107

REACTIONS (3)
  - Hypotension [Recovering/Resolving]
  - Abdominal pain upper [Recovering/Resolving]
  - Pruritus [Recovering/Resolving]

NARRATIVE: CASE EVENT DATE: 20250107
